FAERS Safety Report 9924353 (Version 3)
Quarter: 2014Q1

REPORT INFORMATION
  Report Type: Spontaneous
  Country: FR (occurrence: FR)
  Receive Date: 20140226
  Receipt Date: 20140321
  Transmission Date: 20141002
  Serious: Yes (Hospitalization)
  Sender: FDA-Public Use
  Company Number: FR-AMGEN-FRASP2014012468

PATIENT
  Age: 77 Year
  Sex: Female

DRUGS (7)
  1. PROLIA [Suspect]
     Indication: OSTEOPOROSIS POSTMENOPAUSAL
     Dosage: 60 MG, UNK, 1 DAY
     Route: 058
     Dates: start: 201312, end: 201312
  2. LERCAN [Concomitant]
     Indication: HYPERTENSION
     Dosage: UNK UNK, QD
     Route: 048
  3. TAREG [Concomitant]
     Indication: HYPERTENSION
     Dosage: UNK UNK, QD
     Route: 048
  4. DIFFU K [Concomitant]
     Indication: RENAL FAILURE
     Dosage: UNK UNK, QD
     Route: 048
  5. ALDACTONE                          /00006201/ [Concomitant]
     Indication: HYPERTENSION
     Dosage: UNK UNK, QD
     Route: 065
  6. SEROPLEX [Concomitant]
     Indication: DEPRESSION
     Route: 048
  7. VITAMIN D                          /00107901/ [Concomitant]
     Dosage: 80000 UNIT/MONTH
     Route: 065

REACTIONS (2)
  - Renal failure [Unknown]
  - Hypocalcaemia [Recovered/Resolved]
